FAERS Safety Report 20125060 (Version 2)
Quarter: 2022Q2

REPORT INFORMATION
  Report Type: Spontaneous
  Country: US (occurrence: US)
  Receive Date: 20211129
  Receipt Date: 20220504
  Transmission Date: 20220721
  Serious: No
  Sender: FDA-Public Use
  Company Number: US-PFIZER INC-202101655786

PATIENT
  Age: 61 Year
  Sex: Female

DRUGS (1)
  1. PREGABALIN [Suspect]
     Active Substance: PREGABALIN
     Dosage: 450 MG, 2X/DAY [TAKE 3 CAPSULE(S) TWICE A DAY BY ORAL ROUTE FOR 90 DAYS]
     Route: 048

REACTIONS (1)
  - Drug ineffective [Unknown]
